FAERS Safety Report 15681939 (Version 1)
Quarter: 2018Q4

REPORT INFORMATION
  Report Type: Spontaneous
  Country: CN (occurrence: CN)
  Receive Date: 20181203
  Receipt Date: 20181203
  Transmission Date: 20190205
  Serious: Yes (Life-Threatening, Hospitalization)
  Sender: FDA-Public Use
  Company Number: CN-ELI_LILLY_AND_COMPANY-CN201811013672

PATIENT
  Age: 56 Year
  Sex: Male
  Weight: 70 kg

DRUGS (2)
  1. ZYPREXA [Suspect]
     Active Substance: OLANZAPINE
     Indication: POSTOPERATIVE DELIRIUM
     Dosage: 10 MG, DAILY
     Route: 048
     Dates: start: 20181007, end: 20181008
  2. DEXMEDETOMIDINE HYDROCHLORIDE. [Suspect]
     Active Substance: DEXMEDETOMIDINE HYDROCHLORIDE
     Indication: POSTOPERATIVE DELIRIUM
     Dosage: 0.768 MG, SINGLE
     Route: 065
     Dates: start: 20181008, end: 20181008

REACTIONS (1)
  - Cardiac arrest [Recovered/Resolved]

NARRATIVE: CASE EVENT DATE: 20181008
